FAERS Safety Report 22595500 (Version 2)
Quarter: 2023Q2

REPORT INFORMATION
  Report Type: Spontaneous
  Country: VN (occurrence: VN)
  Receive Date: 20230613
  Receipt Date: 20230627
  Transmission Date: 20230721
  Serious: Yes (Life-Threatening, Hospitalization)
  Sender: FDA-Public Use
  Company Number: VN-GE HEALTHCARE-2023CSU004652

PATIENT
  Age: 60 Year
  Sex: Female
  Weight: 43 kg

DRUGS (2)
  1. OMNIPAQUE [Suspect]
     Active Substance: IOHEXOL
     Indication: Computerised tomogram
     Dosage: 65 ML, SINGLE
     Route: 042
     Dates: start: 20230605, end: 20230605
  2. OMNIPAQUE [Suspect]
     Active Substance: IOHEXOL
     Indication: Product used for unknown indication

REACTIONS (3)
  - Pallor [Recovering/Resolving]
  - Pulse absent [Recovering/Resolving]
  - Dyspnoea [Recovering/Resolving]

NARRATIVE: CASE EVENT DATE: 20230605
